FAERS Safety Report 24096638 (Version 1)
Quarter: 2024Q3

REPORT INFORMATION
  Report Type: Spontaneous
  Country: CN (occurrence: CN)
  Receive Date: 20240716
  Receipt Date: 20240716
  Transmission Date: 20241016
  Serious: Yes (Other)
  Sender: PFIZER
  Company Number: CN-PFIZER INC-PV202400092007

PATIENT
  Age: 33 Year
  Sex: Female

DRUGS (1)
  1. HEMABATE [Suspect]
     Active Substance: CARBOPROST TROMETHAMINE
     Indication: Uterine hypotonus
     Dosage: 250 MG, 1X/DAY
     Route: 030
     Dates: start: 20240711, end: 20240711

REACTIONS (4)
  - Diarrhoea [Recovering/Resolving]
  - Nausea [Recovering/Resolving]
  - Vomiting [Recovering/Resolving]
  - Abnormal faeces [Recovering/Resolving]

NARRATIVE: CASE EVENT DATE: 20240711
